FAERS Safety Report 12382808 (Version 2)
Quarter: 2016Q2

REPORT INFORMATION
  Report Type: Report from Study
  Country: US (occurrence: US)
  Receive Date: 20160518
  Receipt Date: 20160624
  Transmission Date: 20160815
  Serious: Yes (Hospitalization)
  Sender: FDA-Public Use
  Company Number: US-BIOGEN-2016BI00238637

PATIENT
  Age: 57 Year
  Sex: Male

DRUGS (1)
  1. TYSABRI [Suspect]
     Active Substance: NATALIZUMAB
     Indication: MULTIPLE SCLEROSIS
     Dosage: INFUSED OVER 1 HOUR
     Route: 042
     Dates: start: 20070103

REACTIONS (5)
  - Fall [Recovered/Resolved]
  - Urinary incontinence [Unknown]
  - Upper limb fracture [Not Recovered/Not Resolved]
  - Musculoskeletal disorder [Unknown]
  - Anal incontinence [Unknown]

NARRATIVE: CASE EVENT DATE: 20160507
